FAERS Safety Report 11714379 (Version 2)
Quarter: 2016Q1

REPORT INFORMATION
  Report Type: Report from Study
  Country: JP (occurrence: JP)
  Receive Date: 20151109
  Receipt Date: 20160222
  Transmission Date: 20160525
  Serious: Yes (Hospitalization)
  Sender: FDA-Public Use
  Company Number: JP-PFIZER INC-2014209647

PATIENT
  Age: 45 Year
  Sex: Female
  Weight: 42 kg

DRUGS (11)
  1. NOVASTAN [Suspect]
     Active Substance: ARGATROBAN
     Indication: HEPARIN-INDUCED THROMBOCYTOPENIA
     Dosage: 0.7 ?G/KG, 1 MIN
     Route: 041
     Dates: start: 20140605, end: 20140609
  2. MAGMITT [Concomitant]
     Active Substance: MAGNESIUM OXIDE
     Dosage: 750 MG, 1X/DAY
     Route: 048
     Dates: start: 20140626
  3. LOXONIN [Concomitant]
     Active Substance: LOXOPROFEN SODIUM
     Dosage: 180 MG, 1X/DAY
     Route: 048
     Dates: start: 20140611, end: 20140615
  4. PARIET [Concomitant]
     Active Substance: RABEPRAZOLE SODIUM
     Dosage: 10 MG, 1X/DAY
     Route: 048
  5. NOVASTAN [Suspect]
     Active Substance: ARGATROBAN
     Dosage: 1 ?G/KG, 1 MIN
     Route: 041
     Dates: start: 20140609, end: 20140615
  6. WARFARIN [Concomitant]
     Active Substance: WARFARIN
     Dosage: 2 MG, 1X/DAY
     Route: 048
     Dates: start: 20140611
  7. FLUMARIN [Concomitant]
     Active Substance: FLOMOXEF SODIUM
     Indication: PROPHYLAXIS
     Dosage: 2 G, 1X/DAY
     Route: 042
     Dates: start: 20140604, end: 20140607
  8. ALOSENN [Concomitant]
     Active Substance: SENNA LEAF
     Dosage: 0.5 G, AS NEEDED
     Route: 048
     Dates: start: 20140621
  9. DAIKENCHUTO [Concomitant]
     Active Substance: HERBALS
     Dosage: 15 G, 1X/DAY
     Route: 048
  10. HEPARIN SODIUM. [Concomitant]
     Active Substance: HEPARIN SODIUM
     Indication: DEEP VEIN THROMBOSIS
     Dosage: UNK
     Route: 051
     Dates: start: 20140524
  11. FERROMIA [Concomitant]
     Active Substance: FERROUS CITRATE
     Dosage: 100 MG, 1X/DAY
     Route: 048

REACTIONS (1)
  - Pulmonary embolism [Recovering/Resolving]

NARRATIVE: CASE EVENT DATE: 20140613
